FAERS Safety Report 24327998 (Version 1)
Quarter: 2024Q3

REPORT INFORMATION
  Report Type: Spontaneous
  Country: IN (occurrence: IN)
  Receive Date: 20240917
  Receipt Date: 20240917
  Transmission Date: 20241017
  Serious: Yes (Other)
  Sender: PIRAMAL
  Company Number: IN-PIRAMAL PHARMA LIMITED-2024-PPL-000669

PATIENT

DRUGS (1)
  1. SEVOFLURANE [Suspect]
     Active Substance: SEVOFLURANE
     Indication: Sedation
     Dosage: UNK

REACTIONS (2)
  - Nephrogenic diabetes insipidus [Unknown]
  - Product use in unapproved indication [Unknown]
